FAERS Safety Report 21436548 (Version 1)
Quarter: 2022Q4

REPORT INFORMATION
  Report Type: Spontaneous
  Country: RU (occurrence: None)
  Receive Date: 20221010
  Receipt Date: 20221010
  Transmission Date: 20230112
  Serious: Yes (Other)
  Sender: FDA-Public Use
  Company Number: 2022A342020

PATIENT
  Age: 35 Year
  Sex: Female

DRUGS (11)
  1. PROPOFOL [Suspect]
     Active Substance: PROPOFOL
     Indication: Induction and maintenance of anaesthesia
     Dosage: 2 MG/KG, UNK
     Route: 042
     Dates: start: 20210928, end: 20210928
  2. PROPOFOL [Suspect]
     Active Substance: PROPOFOL
     Indication: Induction and maintenance of anaesthesia
     Dosage: 100 MG/KG/G (CONTINUOUS INFUSION)
     Route: 042
     Dates: start: 20210928, end: 20210928
  3. OMEPRAZOLE [Suspect]
     Active Substance: OMEPRAZOLE
     Indication: Respiratory disorder prophylaxis
     Route: 042
     Dates: start: 20210927, end: 20210928
  4. OMEPRAZOLE [Suspect]
     Active Substance: OMEPRAZOLE
     Indication: Infection prophylaxis
     Route: 042
     Dates: start: 20210927, end: 20210928
  5. METOCLOPRAMIDE [Suspect]
     Active Substance: METOCLOPRAMIDE
     Indication: Respiratory disorder prophylaxis
     Route: 030
     Dates: start: 20210927, end: 20210928
  6. METOCLOPRAMIDE [Suspect]
     Active Substance: METOCLOPRAMIDE
     Indication: Infection prophylaxis
     Route: 030
     Dates: start: 20210927, end: 20210928
  7. CEFTRIAXONE [Suspect]
     Active Substance: CEFTRIAXONE
     Indication: Respiratory disorder prophylaxis
     Dosage: UNK
     Route: 030
     Dates: start: 20210927, end: 20210928
  8. CEFTRIAXONE [Suspect]
     Active Substance: CEFTRIAXONE
     Indication: Infection prophylaxis
     Dosage: UNK
     Route: 030
     Dates: start: 20210927, end: 20210928
  9. ATROPINE [Suspect]
     Active Substance: ATROPINE
     Indication: Premedication
     Dosage: 0.7 ML, SINGLE
     Route: 042
     Dates: start: 20210928, end: 20210928
  10. ROCURONIUM BROMIDE [Suspect]
     Active Substance: ROCURONIUM BROMIDE
     Indication: Muscle relaxant therapy
     Dosage: 0.8 MG/KG, SINGLE
     Route: 065
     Dates: start: 20210928, end: 20210928
  11. FENTANYL [Suspect]
     Active Substance: FENTANYL
     Indication: Maintenance of anaesthesia
     Dosage: 5 MCG/KG/G
     Route: 065
     Dates: start: 20210928, end: 20210928

REACTIONS (1)
  - Dyspnoea [Recovered/Resolved]

NARRATIVE: CASE EVENT DATE: 20210928
